FAERS Safety Report 25941731 (Version 1)
Quarter: 2025Q4

REPORT INFORMATION
  Report Type: Spontaneous
  Country: US (occurrence: US)
  Receive Date: 20251020
  Receipt Date: 20251020
  Transmission Date: 20260118
  Serious: Yes (Other)
  Sender: JUBILANT
  Company Number: US-JUBILANT CADISTA PHARMACEUTICALS INC.-2024JUB00081

PATIENT
  Sex: Female

DRUGS (7)
  1. PREDNISONE [Suspect]
     Active Substance: PREDNISONE
     Dosage: 60 MG
     Dates: start: 202409
  2. ZYRTEC [Suspect]
     Active Substance: CETIRIZINE HYDROCHLORIDE
     Dosage: UNK UNK, 4X/DAY
     Dates: start: 202409
  3. FAMOTIDINE [Suspect]
     Active Substance: FAMOTIDINE
     Dosage: UNK, 2X/DAY
     Dates: start: 202409
  4. MONTELUKAST [Suspect]
     Active Substance: MONTELUKAST
     Dosage: UNK, 1X/DAY
     Dates: start: 202409
  5. ISOTRETINOIN [Concomitant]
     Active Substance: ISOTRETINOIN
     Dosage: UNK
     Dates: start: 20240701
  6. SPRINTEC [Concomitant]
     Active Substance: ETHINYL ESTRADIOL\NORGESTIMATE
     Dosage: UNK
     Dates: start: 20180806
  7. ASCORBIC ACID\FERROUS FUMARATE [Concomitant]
     Active Substance: ASCORBIC ACID\FERROUS FUMARATE
     Dosage: UNK
     Dates: start: 20200706

REACTIONS (8)
  - Pharyngeal swelling [Unknown]
  - Swelling face [Unknown]
  - Bone pain [Unknown]
  - Pain in jaw [Unknown]
  - Flushing [Unknown]
  - Erythema [Unknown]
  - Dyspnoea [Unknown]
  - Sinus pain [Unknown]

NARRATIVE: CASE EVENT DATE: 20240101
